FAERS Safety Report 7474750-7 (Version None)
Quarter: 2011Q2

REPORT INFORMATION
  Report Type: 
  Country: None (occurrence: None)
  Receive Date: 20110512
  Receipt Date: 20110502
  Transmission Date: 20111010
  Serious: Yes (Hospitalization)
  Sender: FDA-Public Use
  Company Number: CA-JNJFOC-20110307315

PATIENT
  Sex: Female
  Weight: 78 kg

DRUGS (5)
  1. SIMPONI [Suspect]
     Indication: RHEUMATOID ARTHRITIS
     Route: 058
  2. HYDROXYCHLOROQUINE [Concomitant]
  3. LEFLUNOMIDE [Concomitant]
  4. SIMPONI [Suspect]
     Route: 058
  5. PREDNISONE [Concomitant]

REACTIONS (8)
  - SWELLING FACE [None]
  - PYREXIA [None]
  - ECZEMA [None]
  - RASH [None]
  - HYPERTENSION [None]
  - FUNGAL INFECTION [None]
  - BLOOD URINE PRESENT [None]
  - URINARY TRACT INFECTION [None]
